FAERS Safety Report 14590570 (Version 1)
Quarter: 2018Q1

REPORT INFORMATION
  Report Type: Spontaneous
  Country: US (occurrence: US)
  Receive Date: 20180301
  Receipt Date: 20180301
  Transmission Date: 20180509
  Serious: Yes (Disabling)
  Sender: FDA-Public Use
  Company Number: None

PATIENT
  Age: 64 Year
  Sex: Female
  Weight: 106.2 kg

DRUGS (4)
  1. BOTOX [Suspect]
     Active Substance: ONABOTULINUMTOXINA
     Indication: MIGRAINE
     Route: 058
  2. BLOOD PRESSURE MEDS [Concomitant]
  3. STOMACH MEDS [Concomitant]
  4. ANXIETY DEPRESSION MEDS [Concomitant]

REACTIONS (2)
  - Drug ineffective [None]
  - Headache [None]

NARRATIVE: CASE EVENT DATE: 20180119
